FAERS Safety Report 9981101 (Version 1)
Quarter: 2014Q1

REPORT INFORMATION
  Report Type: Spontaneous
  Country: US (occurrence: None)
  Receive Date: 20140306
  Receipt Date: 20140306
  Transmission Date: 20141002
  Serious: Yes (Life-Threatening, Other)
  Sender: FDA-Public Use
  Company Number: None

PATIENT
  Age: 58 Year
  Sex: Female

DRUGS (4)
  1. LISINOPRIL HCTZ [Suspect]
     Dosage: TWICE A DAY.
     Route: 048
  2. SIMVASTATIN [Suspect]
     Dosage: HS.
     Route: 048
  3. TRAMADOL [Suspect]
     Dosage: AS NEEDED.
  4. CYCLOBENZAPRINE [Suspect]

REACTIONS (12)
  - Fatigue [None]
  - Dizziness [None]
  - Somnolence [None]
  - Cough [None]
  - Somnolence [None]
  - Musculoskeletal stiffness [None]
  - Headache [None]
  - Pyrexia [None]
  - Malaise [None]
  - Swelling face [None]
  - Eye swelling [None]
  - Lacrimation increased [None]
